FAERS Safety Report 19944003 (Version 5)
Quarter: 2022Q1

REPORT INFORMATION
  Report Type: Report from Study
  Country: US (occurrence: US)
  Receive Date: 20211012
  Receipt Date: 20220201
  Transmission Date: 20220423
  Serious: Yes (Other)
  Sender: FDA-Public Use
  Company Number: US-BRISTOL-MYERS SQUIBB COMPANY-BMS-2021-099497

PATIENT
  Age: 73 Year
  Sex: Male

DRUGS (3)
  1. APIXABAN [Suspect]
     Active Substance: APIXABAN
     Indication: Cerebrovascular accident prophylaxis
     Dosage: 5 MILLIGRAM, BID
     Route: 048
     Dates: start: 20210624, end: 20210629
  2. APIXABAN [Suspect]
     Active Substance: APIXABAN
     Indication: Atrial flutter
  3. NEUPOGEN [Suspect]
     Active Substance: FILGRASTIM
     Indication: Haemoglobin decreased
     Dosage: UNK
     Route: 065

REACTIONS (9)
  - Seizure [Unknown]
  - Intestinal haemorrhage [Unknown]
  - Arrhythmia [Unknown]
  - Haemoglobin decreased [Recovering/Resolving]
  - Eructation [Not Recovered/Not Resolved]
  - Dyspepsia [Unknown]
  - Cognitive disorder [Unknown]
  - Weight decreased [Unknown]
  - Gastrointestinal disorder [Unknown]
